FAERS Safety Report 8309314-6 (Version None)
Quarter: 2012Q2

REPORT INFORMATION
  Report Type: 
  Country: None (occurrence: None)
  Receive Date: 20120425
  Receipt Date: 20120420
  Transmission Date: 20120825
  Serious: Yes (Death)
  Sender: FDA-Public Use
  Company Number: US-ASTRAZENECA-2012SE26025

PATIENT

DRUGS (1)
  1. VANDETANIB [Suspect]
     Route: 048

REACTIONS (2)
  - DISEASE PROGRESSION [None]
  - DEATH [None]
